FAERS Safety Report 17903302 (Version 1)
Quarter: 2020Q2

REPORT INFORMATION
  Report Type: Spontaneous
  Country: KR (occurrence: KR)
  Receive Date: 20200616
  Receipt Date: 20200616
  Transmission Date: 20200714
  Serious: Yes (Other)
  Sender: FDA-Public Use
  Company Number: KR-AMGEN-KORSP2020095114

PATIENT
  Sex: Male

DRUGS (4)
  1. KYPROLIS [Suspect]
     Active Substance: CARFILZOMIB
     Dosage: UNK UNK, 2 TIMES/WK, ABOUT 80% OF THE FULL DOSE (56 MG/M2)
     Route: 042
     Dates: start: 2020
  2. REVLIMID [Concomitant]
     Active Substance: LENALIDOMIDE
     Indication: PLASMA CELL MYELOMA
     Dosage: UNK
     Dates: start: 2019
  3. DEXAMETHASONE. [Concomitant]
     Active Substance: DEXAMETHASONE
     Indication: PLASMA CELL MYELOMA
     Dosage: UNK
     Dates: start: 2019
  4. KYPROLIS [Suspect]
     Active Substance: CARFILZOMIB
     Indication: PLASMA CELL MYELOMA
     Dosage: 27 MILLIGRAM/SQ. METER, 2 TIMES/WK
     Route: 042
     Dates: start: 2019

REACTIONS (5)
  - Discomfort [Unknown]
  - Depressed mood [Unknown]
  - Off label use [Unknown]
  - Immunosuppression [Unknown]
  - Fatigue [Unknown]

NARRATIVE: CASE EVENT DATE: 2019
